FAERS Safety Report 11051456 (Version 1)
Quarter: 2015Q2

REPORT INFORMATION
  Report Type: Spontaneous
  Country: US (occurrence: None)
  Receive Date: 20150420
  Receipt Date: 20150420
  Transmission Date: 20150821
  Serious: Yes (Disabling, Other)
  Sender: FDA-Public Use
  Company Number: None

PATIENT
  Age: 70 Year
  Sex: Male
  Weight: 84.82 kg

DRUGS (5)
  1. LIPITOR [Concomitant]
     Active Substance: ATORVASTATIN CALCIUM
  2. MOBIC [Suspect]
     Active Substance: MELOXICAM
  3. ASA [Concomitant]
     Active Substance: ASPIRIN
  4. GLUCOSAMINE [Concomitant]
     Active Substance: GLUCOSAMINE
  5. CONDROITIN [Concomitant]

REACTIONS (1)
  - Idiopathic pulmonary fibrosis [None]
